FAERS Safety Report 7904695-7 (Version None)
Quarter: 2011Q4

REPORT INFORMATION
  Report Type: 
  Country: None (occurrence: None)
  Receive Date: 20111109
  Receipt Date: 20111031
  Transmission Date: 20120403
  Serious: Yes (Other)
  Sender: FDA-Public Use
  Company Number: JP-GLAXOSMITHKLINE-B0759995A

PATIENT
  Age: 7 Decade
  Sex: Female

DRUGS (2)
  1. WARFARIN SODIUM [Concomitant]
     Route: 048
  2. ARIXTRA [Suspect]
     Indication: DEEP VEIN THROMBOSIS
     Dosage: 7.5MG PER DAY
     Route: 058

REACTIONS (4)
  - VESSEL PUNCTURE SITE HAEMORRHAGE [None]
  - ANAEMIA [None]
  - INTRA-ABDOMINAL HAEMORRHAGE [None]
  - ABDOMINAL PAIN [None]
